FAERS Safety Report 11719708 (Version 2)
Quarter: 2018Q3

REPORT INFORMATION
  Report Type: Spontaneous
  Country: US (occurrence: US)
  Receive Date: 20151110
  Receipt Date: 20180716
  Transmission Date: 20181010
  Serious: Yes (Hospitalization)
  Sender: FDA-Public Use
  Company Number: US-DSJP-DSU-2015-121038

PATIENT

DRUGS (4)
  1. DIGOXIN. [Concomitant]
     Active Substance: DIGOXIN
     Indication: PRODUCT USED FOR UNKNOWN INDICATION
     Dosage: 0.125 MG, QD
     Dates: start: 200604
  2. BENICAR [Suspect]
     Active Substance: OLMESARTAN MEDOXOMIL
     Indication: HYPERTENSION
     Dosage: 40 MG, QD
     Dates: start: 20071127, end: 20121221
  3. BENICAR [Suspect]
     Active Substance: OLMESARTAN MEDOXOMIL
     Indication: OCULAR ISCHAEMIC SYNDROME
     Dosage: 20 MG, QD
     Dates: start: 20121221, end: 20130107
  4. BENICAR [Suspect]
     Active Substance: OLMESARTAN MEDOXOMIL
     Dosage: 10 MG, QD
     Dates: start: 201301, end: 201305

REACTIONS (10)
  - Acute kidney injury [Unknown]
  - Oedema peripheral [Unknown]
  - Pancreatic failure [Recovering/Resolving]
  - Coeliac disease [Unknown]
  - Confusional state [Unknown]
  - Atrial fibrillation [Unknown]
  - Renal cyst [Unknown]
  - Microcytic anaemia [Unknown]
  - Sprue-like enteropathy [Unknown]
  - Eosinophil count increased [Unknown]

NARRATIVE: CASE EVENT DATE: 20110907
